FAERS Safety Report 25324347 (Version 2)
Quarter: 2025Q2

REPORT INFORMATION
  Report Type: Report from Study
  Country: JP (occurrence: JP)
  Receive Date: 20250516
  Receipt Date: 20250530
  Transmission Date: 20250717
  Serious: Yes (Hospitalization)
  Sender: EISAI
  Company Number: JP-Eisai-202501740_LEQ_P_1

PATIENT
  Age: 72 Year
  Sex: Female

DRUGS (5)
  1. LEQEMBI [Suspect]
     Active Substance: LECANEMAB-IRMB
     Indication: Cognitive disorder
     Dates: start: 20250203, end: 20250428
  2. SULPIRIDE [Concomitant]
     Active Substance: SULPIRIDE
  3. EFFEXOR XR [Concomitant]
     Active Substance: VENLAFAXINE HYDROCHLORIDE
  4. ELDECALCITOL [Concomitant]
     Active Substance: ELDECALCITOL
  5. BONALON [Concomitant]
     Active Substance: ALENDRONATE SODIUM

REACTIONS (1)
  - Brain stem haemorrhage [Not Recovered/Not Resolved]

NARRATIVE: CASE EVENT DATE: 20250429
